FAERS Safety Report 15903980 (Version 1)
Quarter: 2019Q1

REPORT INFORMATION
  Report Type: Spontaneous
  Country: US (occurrence: US)
  Receive Date: 20190204
  Receipt Date: 20190204
  Transmission Date: 20190417
  Serious: Yes (Hospitalization, Other)
  Sender: FDA-Public Use
  Company Number: US-ACCORD-104288

PATIENT
  Age: 66 Year
  Sex: Male

DRUGS (2)
  1. PREDNISONE/PREDNISONE ACETATE [Suspect]
     Active Substance: PREDNISONE ACETATE
     Indication: SARCOIDOSIS
     Dosage: 40 MG/DAY
  2. METHOTREXATE. [Suspect]
     Active Substance: METHOTREXATE
     Indication: SARCOIDOSIS

REACTIONS (9)
  - Stenotrophomonas infection [Recovering/Resolving]
  - Herpes zoster [Recovering/Resolving]
  - Off label use [Unknown]
  - Epidermal necrosis [Recovering/Resolving]
  - Cutaneous vasculitis [Recovering/Resolving]
  - Escherichia infection [Recovering/Resolving]
  - Skin ulcer [Recovering/Resolving]
  - Pseudomonas infection [Recovering/Resolving]
  - Enterococcal infection [Recovering/Resolving]
